FAERS Safety Report 6582361-0 (Version None)
Quarter: 2010Q1

REPORT INFORMATION
  Report Type: 
  Country: None (occurrence: None)
  Receive Date: 20100216
  Receipt Date: 20100209
  Transmission Date: 20100710
  Serious: Yes (Hospitalization)
  Sender: FDA-Public Use
  Company Number: CN-BRACCO-000013

PATIENT
  Age: 73 Year
  Sex: Female

DRUGS (8)
  1. IOPAMIRO [Suspect]
     Indication: PERCUTANEOUS CORONARY INTERVENTION
     Route: 013
     Dates: start: 20080528, end: 20080528
  2. IOPAMIRO [Suspect]
     Indication: CORONARY ARTERY STENOSIS
     Route: 013
     Dates: start: 20080528, end: 20080528
  3. IOPAMIRO [Suspect]
     Indication: ANGINA UNSTABLE
     Route: 013
     Dates: start: 20080528, end: 20080528
  4. IOPAMIRO [Suspect]
     Indication: ANGIOGRAM
     Route: 013
     Dates: start: 20080528, end: 20080528
  5. SODIUM CHLORIDE [Concomitant]
     Dosage: SODIUM CHLORIDE (10% NACI PER DAY)
     Route: 042
     Dates: start: 20080530, end: 20080603
  6. ASPIRIN [Concomitant]
     Route: 065
  7. AMLODIPINE [Concomitant]
     Route: 065
  8. CLOPIDOGREL                        /01220701/ [Concomitant]
     Route: 065

REACTIONS (7)
  - ASTHENIA [None]
  - BLOOD CHLORIDE DECREASED [None]
  - BLOOD POTASSIUM DECREASED [None]
  - BLOOD SODIUM DECREASED [None]
  - CARDIAC FAILURE [None]
  - NAUSEA [None]
  - VOMITING [None]
